FAERS Safety Report 23789463 (Version 1)
Quarter: 2024Q2

REPORT INFORMATION
  Report Type: Spontaneous
  Country: CN (occurrence: CN)
  Receive Date: 20240426
  Receipt Date: 20240426
  Transmission Date: 20240716
  Serious: Yes (Other)
  Sender: FDA-Public Use
  Company Number: CN-JNJFOC-20240472116

PATIENT
  Age: 73 Year
  Sex: Male
  Weight: 85.5 kg

DRUGS (3)
  1. CHILDRENS MOTRIN [Suspect]
     Active Substance: IBUPROFEN
     Indication: Pyrexia
     Route: 048
     Dates: start: 20240413, end: 20240413
  2. LIPITOR [Concomitant]
     Active Substance: ATORVASTATIN CALCIUM
     Indication: Intervertebral disc protrusion
     Route: 065
     Dates: start: 20240406
  3. LORATADINE [Concomitant]
     Active Substance: LORATADINE
     Indication: Drug eruption
     Route: 048
     Dates: start: 20240406

REACTIONS (2)
  - Off label use [Unknown]
  - Drug eruption [Recovering/Resolving]

NARRATIVE: CASE EVENT DATE: 20240413
